FAERS Safety Report 16773134 (Version 4)
Quarter: 2019Q4

REPORT INFORMATION
  Report Type: Report from Study
  Country: None (occurrence: US)
  Receive Date: 20190904
  Receipt Date: 20191015
  Transmission Date: 20200122
  Serious: Yes (Other)
  Sender: FDA-Public Use
  Company Number: US-ABBVIE-19P-163-2903428-00

PATIENT
  Age: 28 Year
  Sex: Male
  Weight: 76.3 kg

DRUGS (3)
  1. RISANKIZUMAB [Suspect]
     Active Substance: RISANKIZUMAB
     Indication: CROHN^S DISEASE
     Route: 042
     Dates: start: 20190219, end: 20190219
  2. RISANKIZUMAB [Suspect]
     Active Substance: RISANKIZUMAB
     Indication: CROHN^S DISEASE
     Route: 058
     Dates: start: 20180817, end: 20190204
  3. RISANKIZUMAB [Suspect]
     Active Substance: RISANKIZUMAB
     Route: 058
     Dates: start: 20190403, end: 20190722

REACTIONS (1)
  - Histoplasmosis disseminated [Not Recovered/Not Resolved]

NARRATIVE: CASE EVENT DATE: 20190820
